FAERS Safety Report 8156079-7 (Version None)
Quarter: 2012Q1

REPORT INFORMATION
  Report Type: 
  Country: None (occurrence: None)
  Receive Date: 20120221
  Receipt Date: 20120221
  Transmission Date: 20120608
  Serious: Yes (Hospitalization)
  Sender: FDA-Public Use
  Company Number: None

PATIENT
  Age: 72 Year
  Sex: Female
  Weight: 95.2554 kg

DRUGS (12)
  1. SIMVASTATIN [Concomitant]
  2. MULTI-VITAMIN [Concomitant]
  3. ZOMETA [Concomitant]
  4. XL-184 / CABOZANTINIB [Suspect]
     Indication: BREAST CANCER METASTATIC
     Dosage: 50MG SALT FORM. PO QD
     Dates: start: 20111201, end: 20120215
  5. LEVOXYL [Concomitant]
  6. FOLIC ACID [Concomitant]
  7. HYDROCHLOROTHIAZIDE [Concomitant]
  8. VITAMIN D [Concomitant]
  9. ASPIRIN [Concomitant]
  10. LISINOPRIL [Concomitant]
  11. LOPERAMIDE HCL [Concomitant]
  12. TOPROL-XL [Interacting]

REACTIONS (2)
  - THERAPEUTIC RESPONSE DECREASED [None]
  - VULVAL ABSCESS [None]
